FAERS Safety Report 9166987 (Version 6)
Quarter: 2014Q1

REPORT INFORMATION
  Report Type: Report from Study
  Country: DE (occurrence: DE)
  Receive Date: 20130317
  Receipt Date: 20140310
  Transmission Date: 20141002
  Serious: Yes (Hospitalization, Other)
  Sender: FDA-Public Use
  Company Number: DE-UCBSA-052150

PATIENT
  Sex: Male

DRUGS (10)
  1. CERTOLIZUMAB PEGOL [Suspect]
     Indication: RHEUMATOID ARTHRITIS
     Dosage: NO. OF DOSES RECEIVED: 20
     Route: 058
     Dates: start: 20101229, end: 20120826
  2. MTX [Concomitant]
     Indication: RHEUMATOID ARTHRITIS
     Dosage: DOSE: 15 MG, QS
     Dates: end: 20120501
  3. MTX [Concomitant]
     Indication: RHEUMATOID ARTHRITIS
     Dosage: DOSE: 15 MG, QS
     Dates: start: 20120501, end: 20120629
  4. FOLSAURE [Concomitant]
     Indication: VITAMIN SUPPLEMENTATION
     Dosage: QS
     Dates: start: 20101213, end: 20120629
  5. VITAMIN D3 [Concomitant]
     Indication: OSTEOPOROSIS PROPHYLAXIS
     Dates: start: 20101217
  6. IBUPROFEN [Concomitant]
     Indication: PAIN
     Dates: end: 20101212
  7. IBUPROFEN [Concomitant]
     Indication: OSTEOARTHRITIS
     Dates: end: 20101212
  8. IBUPROFEN [Concomitant]
     Indication: PAIN
  9. IBUPROFEN [Concomitant]
     Indication: OSTEOARTHRITIS
  10. PANTOPRAZOL [Concomitant]
     Dates: start: 20101213

REACTIONS (2)
  - Deep vein thrombosis [Recovered/Resolved]
  - Wound necrosis [Recovered/Resolved]
